FAERS Safety Report 9922276 (Version 1)
Quarter: 2014Q1

REPORT INFORMATION
  Report Type: Spontaneous
  Country: US (occurrence: US)
  Receive Date: 20140225
  Receipt Date: 20140225
  Transmission Date: 20141002
  Serious: Yes (Other)
  Sender: FDA-Public Use
  Company Number: US-GLAXOSMITHKLINE-A1062181A

PATIENT
  Age: 62 Year
  Sex: Male
  Weight: 104.5 kg

DRUGS (8)
  1. WELLBUTRIN [Suspect]
     Indication: EX-TOBACCO USER
     Route: 065
  2. PATCH (UNSPECIFIED) [Suspect]
  3. PRAVASTATIN [Concomitant]
  4. LISINOPRIL [Concomitant]
  5. METOPROLOL [Concomitant]
  6. METFORMIN [Concomitant]
  7. NEURONTIN [Concomitant]
  8. UNSPECIFIED MEDICATION [Concomitant]

REACTIONS (2)
  - Pulmonary haemorrhage [Unknown]
  - Drug ineffective [Unknown]
